FAERS Safety Report 16116071 (Version 1)
Quarter: 2019Q2

REPORT INFORMATION
  Report Type: Spontaneous
  Country: US (occurrence: US)
  Receive Date: 20190325
  Receipt Date: 20190325
  Transmission Date: 20190711
  Serious: Yes (Other)
  Sender: FDA-Public Use
  Company Number: None

PATIENT
  Age: 71 Year
  Sex: Male
  Weight: 157.5 kg

DRUGS (7)
  1. IRBESARTAN 150 MG [Suspect]
     Active Substance: IRBESARTAN
     Indication: HYPERTENSION
     Route: 048
     Dates: start: 20190318
  2. ATORVASTATIN [Concomitant]
     Active Substance: ATORVASTATIN
  3. TORSEMIDE. [Concomitant]
     Active Substance: TORSEMIDE
  4. CLOPIDOGREL [Concomitant]
     Active Substance: CLOPIDOGREL BISULFATE
  5. SPIRONOLACTONE. [Concomitant]
     Active Substance: SPIRONOLACTONE
  6. CARVEDILOL. [Concomitant]
     Active Substance: CARVEDILOL
  7. TYLENOL [Concomitant]
     Active Substance: ACETAMINOPHEN

REACTIONS (5)
  - Wrong technique in product usage process [None]
  - Photophobia [None]
  - Myalgia [None]
  - Blood pressure decreased [None]
  - Neck pain [None]

NARRATIVE: CASE EVENT DATE: 20190325
